FAERS Safety Report 24203738 (Version 1)
Quarter: 2024Q3

REPORT INFORMATION
  Report Type: Spontaneous
  Country: CN (occurrence: CN)
  Receive Date: 20240813
  Receipt Date: 20240813
  Transmission Date: 20241016
  Serious: Yes (Other)
  Sender: BEIGENE
  Company Number: CN-BEIGENE-BGN-2024-012275

PATIENT

DRUGS (2)
  1. TISLELIZUMAB [Suspect]
     Active Substance: TISLELIZUMAB
     Indication: Hepatic cancer
     Dosage: 200 MILLIGRAM
     Route: 041
     Dates: start: 20240804, end: 20240804
  2. SODIUM CHLORIDE [Suspect]
     Active Substance: SODIUM CHLORIDE
     Indication: Vehicle solution use
     Dosage: 100 MILLILITER
     Route: 041
     Dates: start: 20240804, end: 20240804

REACTIONS (10)
  - Rash [Recovering/Resolving]
  - Pruritus [Recovering/Resolving]
  - Swelling face [Recovering/Resolving]
  - Swollen tongue [Recovering/Resolving]
  - Dysarthria [Unknown]
  - Anaesthesia oral [Unknown]
  - Dysphonia [Unknown]
  - Swelling of eyelid [Recovering/Resolving]
  - Lip swelling [Unknown]
  - Listless [Unknown]

NARRATIVE: CASE EVENT DATE: 20240804
